FAERS Safety Report 5869943-6 (Version None)
Quarter: 2008Q3

REPORT INFORMATION
  Report Type: 
  Country: None (occurrence: None)
  Receive Date: 20080904
  Receipt Date: 20080822
  Transmission Date: 20090109
  Serious: Yes (Hospitalization, Other)
  Sender: FDA-Public Use
  Company Number: US-PFIZER INC-2008050340

PATIENT
  Sex: Female
  Weight: 91 kg

DRUGS (7)
  1. ZOLOFT [Suspect]
     Indication: DEPRESSION
     Route: 048
  2. ZOLOFT [Suspect]
     Indication: ANXIETY
  3. RELPAX [Concomitant]
     Indication: MIGRAINE
  4. TYLENOL (CAPLET) [Concomitant]
  5. VICODIN [Concomitant]
  6. PROMETHAZINE [Concomitant]
  7. ALL OTHER THERAPEUTIC PRODUCTS [Concomitant]
     Indication: HYPERSENSITIVITY

REACTIONS (8)
  - BACK DISORDER [None]
  - FALL [None]
  - FEELING HOT [None]
  - FEMUR FRACTURE [None]
  - HEREDITARY HAEMOCHROMATOSIS [None]
  - OEDEMA PERIPHERAL [None]
  - PETECHIAE [None]
  - WEIGHT DECREASED [None]
